FAERS Safety Report 10150264 (Version 1)
Quarter: 2014Q2

REPORT INFORMATION
  Report Type: Spontaneous
  Country: US (occurrence: None)
  Receive Date: 20140501
  Receipt Date: 20140501
  Transmission Date: 20141212
  Serious: Yes (Hospitalization)
  Sender: FDA-Public Use
  Company Number: None

PATIENT
  Age: 76 Year
  Sex: Male

DRUGS (12)
  1. ENOXAPARIN [Suspect]
     Indication: PULMONARY EMBOLISM
     Route: 058
     Dates: start: 20131001, end: 20131002
  2. ALBUTEROL [Concomitant]
  3. BISACODYL [Concomitant]
  4. DEXAMETHASONE [Concomitant]
  5. DEXTROSE 50% [Concomitant]
  6. IPRATROPIUM [Concomitant]
  7. LEUCOVORIN [Concomitant]
  8. NYSTATIN [Concomitant]
  9. ONDANSETRON [Concomitant]
  10. PIPERACILLIN/TAZOBACTAM [Concomitant]
  11. ZINC OXIDE [Concomitant]
  12. COD LIVER OIL [Concomitant]

REACTIONS (2)
  - Gastrointestinal ulcer haemorrhage [None]
  - Drug administration error [None]
